FAERS Safety Report 14814697 (Version 1)
Quarter: 2018Q2

REPORT INFORMATION
  Report Type: Spontaneous
  Country: JP (occurrence: JP)
  Receive Date: 20180426
  Receipt Date: 20180426
  Transmission Date: 20180711
  Serious: No
  Sender: FDA-Public Use
  Company Number: JP-REGULIS-2046612

PATIENT
  Age: 46 Year
  Sex: Male

DRUGS (1)
  1. PROVAYBLUE [Suspect]
     Active Substance: METHYLENE BLUE
     Indication: PARATHYROIDECTOMY
     Route: 065

REACTIONS (3)
  - Infusion site pain [Unknown]
  - Off label use [Unknown]
  - Infusion site extravasation [Unknown]
